FAERS Safety Report 7644841-6 (Version None)
Quarter: 2011Q3

REPORT INFORMATION
  Report Type: 
  Country: None (occurrence: None)
  Receive Date: 20110729
  Receipt Date: 20110725
  Transmission Date: 20111222
  Serious: Yes (Hospitalization)
  Sender: FDA-Public Use
  Company Number: DE-ABBOTT-11P-062-0728577-00

PATIENT
  Sex: Male

DRUGS (1)
  1. HUMIRA [Suspect]
     Indication: CROHN'S DISEASE
     Route: 058
     Dates: start: 20090907, end: 20110629

REACTIONS (8)
  - DRUG INEFFECTIVE [None]
  - INFLAMMATION [None]
  - IRRITABLE BOWEL SYNDROME [None]
  - DIARRHOEA [None]
  - CROHN'S DISEASE [None]
  - MENTAL DISORDER [None]
  - ABDOMINAL DISCOMFORT [None]
  - SKIN DISORDER [None]
